FAERS Safety Report 8519702-0 (Version None)
Quarter: 2012Q3

REPORT INFORMATION
  Report Type: 
  Country: None (occurrence: None)
  Receive Date: 20120719
  Receipt Date: 20120709
  Transmission Date: 20120928
  Serious: Yes (Hospitalization)
  Sender: FDA-Public Use
  Company Number: CH-BRISTOL-MYERS SQUIBB COMPANY-16769507

PATIENT
  Age: 59 Year
  Sex: Male

DRUGS (3)
  1. DOCETAXEL [Suspect]
     Indication: OESOPHAGEAL CARCINOMA
     Dosage: 140MG: 25APR12-16MAY12 (21D) 36MG:6JUN12- RECENT INF (36MG):27JUN12
     Route: 042
     Dates: start: 20120425
  2. CISPLATIN [Suspect]
     Indication: OESOPHAGEAL CARCINOMA
     Dosage: 140MG:25APR12-16MAY12 (21D) 45MG:6JUN12- RECENT INF (45MG):27JUN12
     Route: 042
     Dates: start: 20120425
  3. CETUXIMAB [Suspect]
     Indication: OESOPHAGEAL CARCINOMA
     Dosage: 750MG:25APR12-25APR12 450MG:2MAY12-2MAY12 400MG:9MAY12- RECENT INF (400MG) :27JUN12
     Route: 042
     Dates: start: 20120425

REACTIONS (1)
  - DYSPHAGIA [None]
